FAERS Safety Report 24371982 (Version 1)
Quarter: 2024Q3

REPORT INFORMATION
  Report Type: Spontaneous
  Country: US (occurrence: US)
  Receive Date: 20240927
  Receipt Date: 20240927
  Transmission Date: 20241016
  Serious: No
  Sender: KALEO
  Company Number: US-Kaleo, Inc.-2024KL000046

PATIENT
  Age: 7 Year
  Sex: Male

DRUGS (1)
  1. AUVI-Q [Suspect]
     Active Substance: EPINEPHRINE

REACTIONS (2)
  - Device leakage [Not Recovered/Not Resolved]
  - Device leakage [Not Recovered/Not Resolved]
